FAERS Safety Report 11911499 (Version 2)
Quarter: 2016Q1

REPORT INFORMATION
  Report Type: Spontaneous
  Country: US (occurrence: US)
  Receive Date: 20160112
  Receipt Date: 20160118
  Transmission Date: 20160526
  Serious: No
  Sender: FDA-Public Use
  Company Number: US-PFIZER INC-2015462482

PATIENT
  Age: 58 Year
  Sex: Female
  Weight: 110 kg

DRUGS (5)
  1. SYNTHROID [Concomitant]
     Active Substance: LEVOTHYROXINE SODIUM
     Indication: HYPOTHYROIDISM
     Dosage: 175 MG, 1X/DAY
  2. OXYCODONE/TYLENOL [Concomitant]
     Indication: MUSCULOSKELETAL DISCOMFORT
  3. LYRICA [Suspect]
     Active Substance: PREGABALIN
     Indication: FIBROMYALGIA
     Dosage: 100 MG, 3X/DAY (1 IN THE MORNING, 1 IN THE AFTERNOON AND 1 BEFORE BED)
     Route: 048
  4. OXYCODONE/TYLENOL [Concomitant]
     Indication: BACK DISORDER
     Dosage: 5/325 MG, 4X/DAY
  5. CYMBALTA [Concomitant]
     Active Substance: DULOXETINE HYDROCHLORIDE
     Indication: DEPRESSION
     Dosage: 50 MG, 1X/DAY

REACTIONS (5)
  - Neuralgia [Unknown]
  - Pain [Not Recovered/Not Resolved]
  - Muscle tightness [Not Recovered/Not Resolved]
  - Limb discomfort [Not Recovered/Not Resolved]
  - Condition aggravated [Unknown]

NARRATIVE: CASE EVENT DATE: 201512
